FAERS Safety Report 13702451 (Version 1)
Quarter: 2017Q2

REPORT INFORMATION
  Report Type: Report from Study
  Country: FR (occurrence: FR)
  Receive Date: 20170629
  Receipt Date: 20170629
  Transmission Date: 20170830
  Serious: Yes (Hospitalization)
  Sender: FDA-Public Use
  Company Number: FR-ASTRAZENECA-2017SE65252

PATIENT
  Age: 8278 Day
  Sex: Male

DRUGS (7)
  1. OXYCONTIN [Concomitant]
     Active Substance: OXYCODONE HYDROCHLORIDE
     Indication: PAIN
  2. IRINOTECAN [Suspect]
     Active Substance: IRINOTECAN
     Indication: REFRACTORY CANCER
     Route: 042
     Dates: start: 20170529, end: 20170602
  3. LEVOTHYROX [Concomitant]
     Active Substance: LEVOTHYROXINE
     Indication: HYPOTHYROIDISM
  4. IMODIUM [Concomitant]
     Active Substance: LOPERAMIDE HYDROCHLORIDE
     Indication: DIARRHOEA
     Route: 048
     Dates: start: 20170603
  5. OLAPARIB [Suspect]
     Active Substance: OLAPARIB
     Indication: REFRACTORY CANCER
     Route: 048
     Dates: start: 20170526, end: 20170604
  6. TRIOFAN [Concomitant]
     Active Substance: XYLOMETAZOLINE
     Indication: DIARRHOEA
     Route: 048
     Dates: start: 20170602
  7. KETOPROFEN. [Concomitant]
     Active Substance: KETOPROFEN
     Indication: PYREXIA
     Route: 048
     Dates: start: 20170602

REACTIONS (4)
  - Abdominal pain [Recovered/Resolved]
  - Diarrhoea [Recovered/Resolved]
  - Dehydration [Recovered/Resolved]
  - Rectal haemorrhage [Recovered/Resolved]

NARRATIVE: CASE EVENT DATE: 20170607
